FAERS Safety Report 18379228 (Version 2)
Quarter: 2020Q4

REPORT INFORMATION
  Report Type: Spontaneous
  Country: US (occurrence: US)
  Receive Date: 20201014
  Receipt Date: 20201028
  Transmission Date: 20210114
  Serious: Yes (Life-Threatening, Hospitalization, Other)
  Sender: FDA-Public Use
  Company Number: US-AUROBINDO-AUR-APL-2020-051753

PATIENT
  Age: 39 Year
  Sex: Female

DRUGS (5)
  1. LAMOTRIGINE. [Suspect]
     Active Substance: LAMOTRIGINE
     Indication: EPILEPSY
     Dosage: UNK
     Route: 065
  2. CARBAMAZEPINE. [Concomitant]
     Active Substance: CARBAMAZEPINE
     Indication: EPILEPSY
     Dosage: UNK, DOSE TAPERED
     Route: 065
  3. AMOXICILLIN. [Suspect]
     Active Substance: AMOXICILLIN
     Indication: PHARYNGITIS
     Dosage: UNK
     Route: 065
  4. AMOXICILLIN. [Suspect]
     Active Substance: AMOXICILLIN
     Indication: LYMPHADENOPATHY
  5. CARBAMAZEPINE. [Concomitant]
     Active Substance: CARBAMAZEPINE

REACTIONS (12)
  - Acute respiratory distress syndrome [Recovering/Resolving]
  - Diabetic ketoacidosis [Unknown]
  - Hepatic failure [Recovering/Resolving]
  - Non-alcoholic steatohepatitis [Recovering/Resolving]
  - Hypovolaemic shock [Unknown]
  - Sepsis [Recovering/Resolving]
  - Fulminant type 1 diabetes mellitus [Unknown]
  - Drug reaction with eosinophilia and systemic symptoms [Recovering/Resolving]
  - Pneumonia bacterial [Recovering/Resolving]
  - Splenic infarction [Unknown]
  - Transaminases increased [Recovering/Resolving]
  - Seizure [Unknown]
